FAERS Safety Report 4315548-8 (Version None)
Quarter: 2004Q1

REPORT INFORMATION
  Report Type: 
  Country: None (occurrence: None)
  Receive Date: 20040311
  Receipt Date: 20040308
  Transmission Date: 20041129
  Serious: Yes (Other)
  Sender: FDA-Public Use
  Company Number: CH-ROCHE-361028

PATIENT
  Age: 13 Year
  Sex: Male

DRUGS (1)
  1. ROACCUTAN [Suspect]
     Indication: DRUG USE FOR UNKNOWN INDICATION
     Route: 048
     Dates: start: 20040215

REACTIONS (3)
  - POSTOPERATIVE WOUND COMPLICATION [None]
  - SKIN ULCER [None]
  - WOUND NECROSIS [None]
